FAERS Safety Report 17807697 (Version 1)
Quarter: 2020Q2

REPORT INFORMATION
  Report Type: Spontaneous
  Country: US (occurrence: US)
  Receive Date: 20200520
  Receipt Date: 20200520
  Transmission Date: 20200714
  Serious: Yes (Hospitalization)
  Sender: FDA-Public Use
  Company Number: None

PATIENT
  Age: 29 Year
  Sex: Female
  Weight: 104.8 kg

DRUGS (1)
  1. FERRLECIT [Suspect]
     Active Substance: SODIUM FERRIC GLUCONATE COMPLEX
     Indication: ANAEMIA
     Route: 042

REACTIONS (6)
  - Paraesthesia [None]
  - Joint swelling [None]
  - Infusion related reaction [None]
  - Peripheral swelling [None]
  - Flank pain [None]
  - Product substitution issue [None]

NARRATIVE: CASE EVENT DATE: 20200516
